FAERS Safety Report 10232549 (Version 1)
Quarter: 2014Q2

REPORT INFORMATION
  Report Type: Spontaneous
  Country: US (occurrence: US)
  Receive Date: 20140612
  Receipt Date: 20140612
  Transmission Date: 20141212
  Serious: No
  Sender: FDA-Public Use
  Company Number: US-TEVA-474418USA

PATIENT
  Age: 14 Year
  Sex: Female

DRUGS (2)
  1. ESCITALOPRAM [Suspect]
     Indication: DEPRESSION
     Route: 048
  2. ESCITALOPRAM [Suspect]
     Indication: ANXIETY

REACTIONS (1)
  - Drug ineffective [Unknown]
